FAERS Safety Report 5009197-6 (Version None)
Quarter: 2006Q2

REPORT INFORMATION
  Report Type: 
  Country: None (occurrence: None)
  Receive Date: 20060519
  Receipt Date: 20060512
  Transmission Date: 20061013
  Serious: Yes (Life-Threatening, Hospitalization, Other)
  Sender: FDA-Public Use
  Company Number: 2006-05-0693

PATIENT
  Age: 28 Year
  Sex: Female

DRUGS (1)
  1. DIPROSPAN (BETAMETHASONE SODIUM PHOSPHATE/DIPROPIONA INJECTABLE SUSPEN [Suspect]
     Indication: DERMATITIS
     Dosage: 1 DOSE INTRAMUSCULAR
     Route: 030
     Dates: start: 20060508

REACTIONS (3)
  - CARDIO-RESPIRATORY ARREST [None]
  - COMA [None]
  - SYNCOPE [None]
